FAERS Safety Report 19977916 (Version 1)
Quarter: 2021Q4

REPORT INFORMATION
  Report Type: Spontaneous
  Country: US (occurrence: US)
  Receive Date: 20211020
  Receipt Date: 20211020
  Transmission Date: 20220303
  Serious: Yes (Death, Other)
  Sender: FDA-Public Use
  Company Number: None

PATIENT
  Age: 22 Year
  Weight: 49.5 kg

DRUGS (5)
  1. GABAPENTIN [Suspect]
     Active Substance: GABAPENTIN
     Indication: Anxiety
     Dosage: ?          QUANTITY:6 CAPSULE(S);
     Route: 048
     Dates: start: 20210305, end: 20210725
  2. GABAPENTIN [Suspect]
     Active Substance: GABAPENTIN
     Indication: Insomnia
  3. LUPRON [Concomitant]
     Active Substance: LEUPROLIDE ACETATE
  4. GABAPENTIN [Concomitant]
     Active Substance: GABAPENTIN
  5. ESTROGENS [Concomitant]
     Active Substance: ESTROGENS

REACTIONS (3)
  - Suicidal ideation [None]
  - Hanging [None]
  - Completed suicide [None]

NARRATIVE: CASE EVENT DATE: 20210725
